FAERS Safety Report 18797498 (Version 2)
Quarter: 2021Q1

REPORT INFORMATION
  Report Type: Spontaneous
  Country: JP (occurrence: JP)
  Receive Date: 20210128
  Receipt Date: 20210222
  Transmission Date: 20210419
  Serious: Yes (Hospitalization, Other)
  Sender: FDA-Public Use
  Company Number: JP-TEVA-2021-JP-1871991

PATIENT
  Age: 7 Decade
  Sex: Male

DRUGS (3)
  1. DOCETAXEL. [Suspect]
     Active Substance: DOCETAXEL
     Indication: OESOPHAGEAL CARCINOMA
     Route: 065
  2. NEDAPLATIN [Suspect]
     Active Substance: NEDAPLATIN
     Indication: OESOPHAGEAL CARCINOMA
     Route: 065
  3. TS?1 [Suspect]
     Active Substance: GIMERACIL\OTERACIL\TEGAFUR
     Indication: OESOPHAGEAL CARCINOMA
     Route: 065

REACTIONS (3)
  - Portal venous gas [Unknown]
  - Pneumatosis intestinalis [Recovering/Resolving]
  - Gastrointestinal necrosis [Recovering/Resolving]
